FAERS Safety Report 4366210-7 (Version None)
Quarter: 2004Q2

REPORT INFORMATION
  Report Type: 
  Country: None (occurrence: None)
  Receive Date: 20040527
  Receipt Date: 20040226
  Transmission Date: 20050107
  Serious: No
  Sender: FDA-Public Use
  Company Number: US-BRISTOL-MYERS SQUIBB COMPANY-12519450

PATIENT
  Age: 51 Year
  Sex: Female

DRUGS (1)
  1. DEFINITY [Suspect]
     Indication: CARDIAC STRESS TEST
     Dosage: 1.3 ML IN 50 ML SALINE.  UNSURE OF HOW MUCH OF THE MIXTURE WAS RECEIVED.
     Route: 042

REACTIONS (2)
  - BACK PAIN [None]
  - DYSPNOEA [None]
